FAERS Safety Report 5510960-3 (Version None)
Quarter: 2007Q4

REPORT INFORMATION
  Report Type: 
  Country: None (occurrence: None)
  Receive Date: 20071109
  Receipt Date: 20071029
  Transmission Date: 20080405
  Serious: Yes (Death, Hospitalization, Other)
  Sender: FDA-Public Use
  Company Number: DE-JNJFOC-20071007962

PATIENT
  Sex: Male

DRUGS (16)
  1. REMICADE [Suspect]
     Indication: RHEUMATOID ARTHRITIS
     Route: 042
  2. HUMIRA [Suspect]
     Route: 058
  3. HUMIRA [Suspect]
     Indication: RHEUMATOID ARTHRITIS
     Route: 058
  4. METHOTREXATE [Suspect]
     Route: 042
  5. METHOTREXATE [Suspect]
     Indication: RHEUMATOID ARTHRITIS
     Dosage: 10 TO 20 MG PER WEEK SEP-2004 TO 20-AUG-2007, PAUSED DURING AN UNKNOWN SHORT PERIOD
     Route: 042
  6. OYSTER SHELL CALCIUM WITH VITAMIN D [Concomitant]
  7. PREDNISOLONE [Concomitant]
     Route: 048
  8. PREDNISOLONE [Concomitant]
     Indication: RHEUMATOID ARTHRITIS
     Route: 048
  9. OLMESARTAN/HCT [Concomitant]
     Indication: HYPERTENSION
     Dosage: 20MG/12.5 MG BEGINNING JUL-2007
     Route: 048
  10. BISOPROLOL FUMARATE [Concomitant]
     Route: 048
  11. AMLODIPINE [Concomitant]
     Indication: HYPERTENSION
     Route: 048
  12. TORSEMIDE [Concomitant]
     Indication: HYPERTENSION
     Route: 048
  13. ALLOPURINOL [Concomitant]
     Indication: GOUTY ARTHRITIS
     Route: 048
  14. ULTRACET [Concomitant]
     Indication: RHEUMATOID ARTHRITIS
     Dosage: 37.5/300 MG BEGINNING SEP-2006
     Route: 048
  15. ESOMEPRAZOLE [Concomitant]
  16. TAMSULOSIN HYDROCHLORIDE [Concomitant]

REACTIONS (10)
  - BLOOD IMMUNOGLOBULIN A INCREASED [None]
  - BLOOD IMMUNOGLOBULIN G INCREASED [None]
  - BLOOD IMMUNOGLOBULIN M INCREASED [None]
  - BRONCHITIS [None]
  - DEATH [None]
  - FLUID INTAKE REDUCED [None]
  - OEDEMA PERIPHERAL [None]
  - RENAL FAILURE [None]
  - RIGHT VENTRICULAR FAILURE [None]
  - TREATMENT NONCOMPLIANCE [None]
